FAERS Safety Report 4888339-7 (Version None)
Quarter: 2005Q4

REPORT INFORMATION
  Report Type: 
  Country: None (occurrence: None)
  Receive Date: 20051221
  Receipt Date: 20050901
  Transmission Date: 20060501
  Serious: No
  Sender: FDA-Public Use
  Company Number: US-YAMANOUCHI-YPA20050358

PATIENT
  Sex: Male

DRUGS (1)
  1. VESICARE [Suspect]
     Dosage: 5 MG, QD, PO
     Route: 048
     Dates: start: 20050720

REACTIONS (2)
  - DIZZINESS [None]
  - RECTAL HAEMORRHAGE [None]
